FAERS Safety Report 13371472 (Version 2)
Quarter: 2017Q2

REPORT INFORMATION
  Report Type: Spontaneous
  Country: JP (occurrence: JP)
  Receive Date: 20170324
  Receipt Date: 20170403
  Transmission Date: 20170830
  Serious: Yes (Death, Hospitalization)
  Sender: FDA-Public Use
  Company Number: JP-ELI_LILLY_AND_COMPANY-JP201703006965

PATIENT
  Age: 74 Year
  Sex: Female
  Weight: 55 kg

DRUGS (1)
  1. EVISTA [Suspect]
     Active Substance: RALOXIFENE HYDROCHLORIDE
     Indication: OSTEOPOROSIS
     Dosage: 60 MG, QD
     Route: 048
     Dates: end: 20170303

REACTIONS (2)
  - Cerebral venous thrombosis [Fatal]
  - Pain in extremity [Unknown]

NARRATIVE: CASE EVENT DATE: 20170303
